FAERS Safety Report 4515631-8 (Version None)
Quarter: 2004Q4

REPORT INFORMATION
  Report Type: 
  Country: None (occurrence: None)
  Receive Date: 20041126
  Receipt Date: 20041115
  Transmission Date: 20050328
  Serious: Yes (Hospitalization, Other)
  Sender: FDA-Public Use
  Company Number: 2004092532

PATIENT
  Age: 14 Year
  Sex: Female

DRUGS (1)
  1. ATARAX [Suspect]
     Indication: ILL-DEFINED DISORDER
     Dosage: 1.75 GRAM ORAL
     Route: 048
     Dates: start: 20041001, end: 20041001

REACTIONS (5)
  - FEELING DRUNK [None]
  - INTENTIONAL OVERDOSE [None]
  - NAUSEA [None]
  - SEDATION [None]
  - SUICIDE ATTEMPT [None]
